FAERS Safety Report 8993052 (Version 2)
Quarter: 2013Q1

REPORT INFORMATION
  Report Type: Spontaneous
  Country: IT (occurrence: IT)
  Receive Date: 20130102
  Receipt Date: 20130118
  Transmission Date: 20140127
  Serious: Yes (Hospitalization)
  Sender: FDA-Public Use
  Company Number: IT-ROCHE-1176262

PATIENT
  Age: 34 Year
  Sex: Male

DRUGS (1)
  1. SYNFLEX [Suspect]
     Indication: BONE PAIN
     Route: 048
     Dates: start: 20120909, end: 20120909

REACTIONS (1)
  - Sinus tachycardia [Recovered/Resolved]
